FAERS Safety Report 17914574 (Version 2)
Quarter: 2020Q3

REPORT INFORMATION
  Report Type: Spontaneous
  Country: ES (occurrence: ES)
  Receive Date: 20200619
  Receipt Date: 20200703
  Transmission Date: 20201103
  Serious: Yes (Life-Threatening)
  Sender: FDA-Public Use
  Company Number: ES-TEVA-2020-ES-1788341

PATIENT
  Age: 64 Year
  Sex: Male

DRUGS (10)
  1. PREDNISONA (886A) [Interacting]
     Active Substance: PREDNISONE
     Indication: HEART TRANSPLANT
     Dosage: 2.5 MG
     Route: 048
     Dates: start: 20170419
  2. PARACETAMOL (12A) [Concomitant]
     Active Substance: ACETAMINOPHEN
     Dosage: 1000 MG
     Route: 048
     Dates: start: 20170419
  3. ADVAGRAF 1 MG 60 CAPSULAS DURAS DE LIBERACION PROLONGADA, 60 CAPSULAS [Interacting]
     Active Substance: TACROLIMUS
     Indication: HEART TRANSPLANT
     Dosage: 2  MG?ADVAGRAF 1 MG 60 CAPSULAS DURAS DE LIBERACION PROLONGADA, 60 CAPSULAS
     Route: 048
     Dates: start: 20170419
  4. OMEPRAZOL (2141A) [Concomitant]
     Active Substance: OMEPRAZOLE
     Dosage: 20 MG
     Route: 048
     Dates: start: 20170419
  5. PICATO [Interacting]
     Active Substance: INGENOL MEBUTATE
     Indication: ACTINIC KERATOSIS
     Dosage: PICATO 150 MICROGRAMOS/GRAMO GEL, 3 TUBOS UNIDOSIS DE 0,47 G
     Route: 061
     Dates: start: 20190403, end: 20190405
  6. FOLICO ACIDO (149A) [Concomitant]
     Indication: HEART TRANSPLANT
     Dosage: 5 MG
     Route: 048
     Dates: start: 20170419
  7. MICOFENOLATO DE MOFETILO (7330LM) [Suspect]
     Active Substance: MYCOPHENOLATE MOFETIL
     Indication: HEART TRANSPLANT
     Dosage: 500 MG
     Route: 048
     Dates: start: 20170419
  8. MUPIROCINA (2317A) [Interacting]
     Active Substance: MUPIROCIN
     Indication: ACTINIC KERATOSIS
     Route: 061
     Dates: start: 20181231
  9. PICATO [Interacting]
     Active Substance: INGENOL MEBUTATE
     Route: 061
     Dates: start: 20181231, end: 20190102
  10. PRAVASTATINA (7192A) [Concomitant]
     Active Substance: PRAVASTATIN SODIUM
     Indication: DYSLIPIDAEMIA
     Dosage: 20 MG
     Route: 048
     Dates: start: 20170419

REACTIONS (2)
  - Drug interaction [Unknown]
  - Squamous cell carcinoma of skin [Not Recovered/Not Resolved]

NARRATIVE: CASE EVENT DATE: 201906
